FAERS Safety Report 9848880 (Version 2)
Quarter: 2014Q2

REPORT INFORMATION
  Report Type: Report from Study
  Country: JP (occurrence: JP)
  Receive Date: 20140128
  Receipt Date: 20140523
  Transmission Date: 20141212
  Serious: Yes (Other)
  Sender: FDA-Public Use
  Company Number: JP-MPIJNJ-2014JNJ000149

PATIENT
  Sex: 0

DRUGS (6)
  1. VELCADE [Suspect]
     Indication: PLASMA CELL MYELOMA
     Dosage: 1.3 MG/M2, UNK
     Route: 058
     Dates: start: 20131126
  2. BAKTAR [Suspect]
     Dosage: UNK
     Route: 048
     Dates: start: 20131125, end: 20131225
  3. CYCLOPHOSPHAMIDE [Concomitant]
     Indication: PLASMA CELL MYELOMA
  4. DEXAMETHASONE [Concomitant]
     Indication: PLASMA CELL MYELOMA
  5. LUPRAC [Concomitant]
     Indication: PLEURAL EFFUSION
     Dosage: 4 MG, UNK
     Route: 048
     Dates: start: 20131219
  6. LUPRAC [Concomitant]
     Indication: CARDIOMEGALY

REACTIONS (4)
  - Electrocardiogram QT prolonged [Recovered/Resolved]
  - Cardiomegaly [Recovering/Resolving]
  - Pleural effusion [Recovering/Resolving]
  - Rash [Recovering/Resolving]
